FAERS Safety Report 8696560 (Version 2)
Quarter: 2012Q4

REPORT INFORMATION
  Report Type: 
  Country: US (occurrence: US)
  Receive Date: 20120801
  Receipt Date: 20121005
  Transmission Date: 20130627
  Serious: Yes (Life-Threatening, Hospitalization)
  Sender: FDA-Public Use
  Company Number: US-BAYER-2012-073902

PATIENT
  Age: 19 Year
  Sex: Female
  Weight: 81.63 kg

DRUGS (17)
  1. YASMIN [Suspect]
     Indication: POLYCYSTIC OVARIES
     Dosage: UNK
     Dates: start: 20030311
  2. YASMIN [Suspect]
     Indication: POLYCYSTIC OVARIES
     Dosage: UNK
     Dates: start: 20030922, end: 20040105
  3. ALBUTEROL [Concomitant]
     Indication: BRONCHITIS
     Dosage: UNK
     Route: 045
     Dates: start: 2002, end: 2005
  4. ALLEGRA [Concomitant]
     Indication: MULTIPLE ALLERGIES
     Dosage: 180 mg, UNK
     Route: 048
     Dates: start: 2002, end: 2006
  5. FELDENE [Concomitant]
     Route: 048
  6. RHINOCORT [Concomitant]
     Dosage: 2 puff(s), q HS
     Route: 045
  7. ADVIL [Concomitant]
     Route: 048
  8. ADVAIR DISKUS [Concomitant]
     Route: 045
  9. SUDAFED [Concomitant]
     Route: 048
  10. GUAIFENESIN W/PSEUDOEPHEDRINE [Concomitant]
     Dosage: UNK
     Route: 048
     Dates: start: 20031111
  11. ZYRTEC [Concomitant]
     Dosage: 10 mg, UNK
     Route: 048
     Dates: start: 20031111
  12. HYDROCODONE [Concomitant]
     Dosage: 5-100/5
     Route: 048
     Dates: start: 20031121
  13. PIROXICAM [Concomitant]
     Dosage: 20 mg, UNK
     Route: 048
     Dates: start: 20031230
  14. LEVAQUIN [Concomitant]
     Indication: SINUSITIS
     Dosage: 500 mg, UNK
     Route: 048
     Dates: start: 200311, end: 200401
  15. SYNTHROID [Concomitant]
     Dosage: 100 ?g, UNK
     Route: 048
     Dates: start: 200401
  16. ZOLOFT [Concomitant]
     Indication: DEPRESSION
     Dosage: 100 mg, UNK
     Route: 048
     Dates: start: 200401
  17. ZOLOFT [Concomitant]
     Indication: ANXIETY

REACTIONS (11)
  - Pulmonary embolism [None]
  - Pain [None]
  - Anxiety [None]
  - Anhedonia [None]
  - Fear [None]
  - Injury [None]
  - Pyrexia [None]
  - Chest pain [None]
  - Dyspnoea [None]
  - Depression [None]
  - Anxiety [None]
